FAERS Safety Report 17265532 (Version 1)
Quarter: 2020Q1

REPORT INFORMATION
  Report Type: Spontaneous
  Country: US (occurrence: US)
  Receive Date: 20200114
  Receipt Date: 20200114
  Transmission Date: 20200409
  Serious: Yes (Hospitalization, Other)
  Sender: FDA-Public Use
  Company Number: US-AUROBINDO-AUR-APL-2020-002303

PATIENT
  Age: 72 Year
  Sex: Male

DRUGS (3)
  1. TENOFOVIR DISOPROXIL FUMARATE. [Suspect]
     Active Substance: TENOFOVIR DISOPROXIL FUMARATE
     Indication: HIV INFECTION
     Dosage: 300 MILLIGRAM,, EVERY OTHER DAY
     Route: 065
  2. ABACAVIR. [Suspect]
     Active Substance: ABACAVIR
     Indication: HIV INFECTION
     Dosage: 600 MILLIGRAM, DAILY
     Route: 065
     Dates: start: 201602
  3. DOLUTEGRAVIR [Suspect]
     Active Substance: DOLUTEGRAVIR
     Indication: HIV INFECTION
     Dosage: 50 MILLIGRAM, DAILY
     Route: 065

REACTIONS (7)
  - Alanine aminotransferase increased [Recovering/Resolving]
  - Abdominal pain [Recovering/Resolving]
  - Immune reconstitution inflammatory syndrome [Unknown]
  - Blood alkaline phosphatase increased [Recovering/Resolving]
  - Lymphadenopathy mediastinal [Recovered/Resolved]
  - Hepatitis B reactivation [Unknown]
  - Aspartate aminotransferase increased [Recovering/Resolving]

NARRATIVE: CASE EVENT DATE: 20160505
